FAERS Safety Report 9993888 (Version 1)
Quarter: 2014Q1

REPORT INFORMATION
  Report Type: Spontaneous
  Country: US (occurrence: US)
  Receive Date: 20140310
  Receipt Date: 20140310
  Transmission Date: 20141002
  Serious: No
  Sender: FDA-Public Use
  Company Number: US-AMGEN-USASP2013062430

PATIENT
  Age: 58 Year
  Sex: Female

DRUGS (12)
  1. SENSIPAR [Suspect]
     Indication: HYPERPARATHYROIDISM SECONDARY
     Dosage: 30 MG, QD
     Route: 048
     Dates: start: 201212
  2. PROCRIT [Concomitant]
  3. DOXAZOSIN [Concomitant]
  4. CLONIDINE [Concomitant]
  5. NIFEDICAL [Concomitant]
  6. SYNTHROID [Concomitant]
  7. VITAMIN D                          /00107901/ [Concomitant]
  8. OMEPRAZOLE [Concomitant]
  9. ZOLPIDEM [Concomitant]
  10. METAMUCIL                          /00029101/ [Concomitant]
  11. FISH OIL [Concomitant]
  12. MULTIVITAMIN                       /07504101/ [Concomitant]

REACTIONS (5)
  - Pain in extremity [Unknown]
  - Mobility decreased [Unknown]
  - Hot flush [Unknown]
  - Headache [Unknown]
  - Myalgia [Unknown]
